FAERS Safety Report 9290153 (Version 1)
Quarter: 2013Q2

REPORT INFORMATION
  Report Type: Spontaneous
  Country: US (occurrence: None)
  Receive Date: 20130514
  Receipt Date: 20130514
  Transmission Date: 20140414
  Serious: Yes (Hospitalization)
  Sender: FDA-Public Use
  Company Number: None

PATIENT
  Age: 62 Year
  Sex: Female
  Weight: 79.83 kg

DRUGS (1)
  1. KEPPRA [Suspect]
     Indication: SYNCOPE
     Dosage: DK
     Route: 048
     Dates: start: 20130429, end: 20130430

REACTIONS (8)
  - Dizziness [None]
  - Visual impairment [None]
  - Vertigo [None]
  - Vomiting [None]
  - Disturbance in attention [None]
  - Thinking abnormal [None]
  - Nasopharyngitis [None]
  - Discomfort [None]
